FAERS Safety Report 8310807-6 (Version None)
Quarter: 2012Q2

REPORT INFORMATION
  Report Type: 
  Country: None (occurrence: None)
  Receive Date: 20120425
  Receipt Date: 20120410
  Transmission Date: 20120825
  Serious: Yes (Life-Threatening, Hospitalization)
  Sender: FDA-Public Use
  Company Number: BE-ROCHE-607946

PATIENT
  Sex: Male
  Weight: 73.7 kg

DRUGS (31)
  1. CELECTOL [Concomitant]
     Dates: start: 19870101, end: 20090110
  2. ASPIRIN [Concomitant]
     Dates: start: 20081203, end: 20090109
  3. REDOMEX [Concomitant]
  4. MAGNESIUM SULFATE ELIXIR [Concomitant]
  5. AVASTIN [Suspect]
     Indication: NON-SMALL CELL LUNG CANCER
     Dosage: LAST DOSE PRIOR TO THE EVENT:08/JAN/2009
     Route: 042
     Dates: start: 20080828, end: 20081113
  6. ASPIRIN [Concomitant]
     Dates: start: 20081111, end: 20081126
  7. METHYLPREDNISOLONE [Concomitant]
  8. CISPLATIN [Suspect]
     Indication: NON-SMALL CELL LUNG CANCER
     Dosage: LAST DOSE PRIOR TO THE EVENT: 08/JAN/2009
     Route: 042
     Dates: start: 20080828, end: 20081113
  9. GEMCITABINE HYDROCHLORIDE [Suspect]
     Indication: NON-SMALL CELL LUNG CANCER
     Dosage: LAST DOSE PRIOR TO THE EVENT: 08/JAN/2009
     Route: 042
     Dates: start: 20080828, end: 20081119
  10. CISPLATIN [Suspect]
     Dosage: DOSAGE REDUCED
     Route: 042
  11. ZOLPIDEM TARTRATE [Concomitant]
  12. OMEPRAZOLE [Concomitant]
  13. ELECTROLYTES/MACROGOL [Concomitant]
  14. LORAZEPAM [Concomitant]
  15. CISPLATIN [Suspect]
     Dosage: REPORTED FORM: FLUID.   LAST DOSE PRIOR TO SAE: 08 JANUARY 2009
     Route: 042
  16. BISOPROLOL FUMARATE [Concomitant]
     Dates: start: 20080814, end: 20090110
  17. TRAMADOL HCL [Concomitant]
     Dates: start: 20081127, end: 20090120
  18. ONDANSETRON [Concomitant]
  19. AVASTIN [Suspect]
     Route: 042
     Dates: start: 20081217, end: 20090129
  20. GEMCITABINE HYDROCHLORIDE [Suspect]
     Dosage: DAY ONE AND DAY 8, ONCE EVERY THREE WEEKS. DOSAGE REDUCED
     Route: 042
  21. ASPIRIN [Concomitant]
     Dates: start: 19870101, end: 20081108
  22. DUOVENT [Concomitant]
  23. MANNITOL [Concomitant]
  24. POTASSIUM CHLORIDE [Concomitant]
  25. GEMCITABINE HYDROCHLORIDE [Suspect]
     Dosage: FREQUENCY: DAY 1+8Q3WEEKS.   LAST DOSE PRIOR TO SAE: 08 JANUARY 2009
     Route: 042
  26. SIMVASTATIN [Concomitant]
  27. CELECTOL [Concomitant]
  28. ACETAMINOPHEN [Concomitant]
  29. MOVIPREP [Concomitant]
     Dosage: REPORTED TDD: 1 SACHET.
     Dates: start: 20080828, end: 20090110
  30. SODIUM CHLORIDE [Concomitant]
  31. GLUCOSE/SODIUM CHLORIDE [Concomitant]

REACTIONS (2)
  - LUNG INFECTION [None]
  - ACUTE PULMONARY OEDEMA [None]
